FAERS Safety Report 7061397-X (Version None)
Quarter: 2010Q4

REPORT INFORMATION
  Report Type: 
  Country: None (occurrence: None)
  Receive Date: 20101026
  Receipt Date: 20101020
  Transmission Date: 20110411
  Serious: Yes (Death, Hospitalization)
  Sender: FDA-Public Use
  Company Number: PHHY2010CA70635

PATIENT
  Sex: Male

DRUGS (2)
  1. EXELON [Suspect]
     Indication: DEMENTIA
     Dosage: 4.6MG/24HOUR
     Route: 062
  2. ANTICOAGULANTS [Concomitant]

REACTIONS (4)
  - ANAEMIA [None]
  - DEATH [None]
  - INTERNATIONAL NORMALISED RATIO INCREASED [None]
  - RECTAL HAEMORRHAGE [None]
